FAERS Safety Report 18191613 (Version 6)
Quarter: 2020Q4

REPORT INFORMATION
  Report Type: Report from Study
  Country: US (occurrence: US)
  Receive Date: 20200824
  Receipt Date: 20201124
  Transmission Date: 20210113
  Serious: Yes (Hospitalization)
  Sender: FDA-Public Use
  Company Number: US-EXELIXIS-XL18420031807

PATIENT
  Age: 92 Year
  Sex: Female
  Weight: 61 kg

DRUGS (20)
  1. XL184 [Suspect]
     Active Substance: CABOZANTINIB
     Indication: TRANSITIONAL CELL CARCINOMA
     Dosage: 40 MG, QD
     Route: 048
     Dates: start: 20200721
  2. FISH OIL [Concomitant]
     Active Substance: FISH OIL
  3. VITAMIN C [Concomitant]
     Active Substance: ASCORBIC ACID
  4. DOCUSATE SODIUM. [Concomitant]
     Active Substance: DOCUSATE SODIUM
  5. ATEZOLIZUMAB. [Suspect]
     Active Substance: ATEZOLIZUMAB
     Indication: TRANSITIONAL CELL CARCINOMA
     Dosage: 1200 MG, Q3WEEKS
     Route: 042
     Dates: start: 20200721
  6. ACETAMINOPHEN. [Concomitant]
     Active Substance: ACETAMINOPHEN
  7. LOPERAMIDE [Concomitant]
     Active Substance: LOPERAMIDE
  8. MELATONIN [Concomitant]
     Active Substance: MELATONIN
  9. GLUCOSAMINE [Concomitant]
     Active Substance: GLUCOSAMINE
  10. IBANDRONATE MONOSODIUM MONOHYDRATE [Concomitant]
  11. VITAMIN E NOS [Concomitant]
     Active Substance: .ALPHA.-TOCOPHEROL
  12. CALCIUM CARBONATE;CALCIUM CITRATE;COLECALCIFEROL [Concomitant]
  13. FERROUS SULFATE. [Concomitant]
     Active Substance: FERROUS SULFATE
  14. CHOLECALCIFEROL [Concomitant]
     Active Substance: CHOLECALCIFEROL
  15. ATEZOLIZUMAB. [Suspect]
     Active Substance: ATEZOLIZUMAB
     Dosage: 1200 MG, Q3WEEKS
     Route: 042
     Dates: start: 20200820
  16. FOLIC ACID. [Concomitant]
     Active Substance: FOLIC ACID
  17. ATENOLOL. [Concomitant]
     Active Substance: ATENOLOL
  18. GINKGO BILOBA [Concomitant]
     Active Substance: GINKGO
  19. BIOTIN [Concomitant]
     Active Substance: BIOTIN
  20. LUTEIN [Concomitant]
     Active Substance: LUTEIN

REACTIONS (3)
  - Hyponatraemia [Recovered/Resolved]
  - Fistula of small intestine [Recovered/Resolved with Sequelae]
  - Dehydration [Recovered/Resolved]

NARRATIVE: CASE EVENT DATE: 20200729
